FAERS Safety Report 4383507-5 (Version None)
Quarter: 2004Q2

REPORT INFORMATION
  Report Type: 
  Country: None (occurrence: None)
  Receive Date: 20040618
  Receipt Date: 20040610
  Transmission Date: 20050107
  Serious: Yes (Hospitalization)
  Sender: FDA-Public Use
  Company Number: 2004SE02105

PATIENT
  Age: 70 Year
  Sex: Male
  Weight: 68 kg

DRUGS (6)
  1. BLOPRESS [Suspect]
     Indication: HYPERTENSION
     Dosage: 8 MG QD; PO
     Route: 048
     Dates: start: 20040119, end: 20040315
  2. AMLODIN [Suspect]
     Indication: HYPERTENSION
     Dosage: 5 MG; PO
     Route: 048
     Dates: start: 20040119, end: 20040315
  3. CARDENALIN [Suspect]
     Indication: HYPERTENSION
     Dosage: 0.5 MG; PO
     Route: 048
     Dates: start: 20040121, end: 20040314
  4. LANSOPRAZOLE [Concomitant]
  5. REBAMIPIDE [Concomitant]
  6. BROTIZOLAM [Concomitant]

REACTIONS (2)
  - FEELING ABNORMAL [None]
  - IRON DEFICIENCY ANAEMIA [None]
